FAERS Safety Report 9887449 (Version 1)
Quarter: 2014Q1

REPORT INFORMATION
  Report Type: Spontaneous
  Country: GB (occurrence: None)
  Receive Date: 20140206
  Receipt Date: 20140206
  Transmission Date: 20141002
  Serious: Yes (Other)
  Sender: FDA-Public Use
  Company Number: 2028711

PATIENT
  Age: 57 Year
  Sex: Female
  Weight: 93 kg

DRUGS (13)
  1. DEXMEDETOMIDINE HYDROCHLORIDE [Suspect]
     Indication: AGITATION
     Dosage: 12 ML/HR; STRENGTH: 8 MCG/ML, UNKNOWN
     Dates: start: 20131103
  2. METOCLOPRAMIDE [Concomitant]
  3. PROPOFOL [Concomitant]
  4. LANSOPRAZOLE [Concomitant]
  5. SALBUTAMOL [Concomitant]
  6. RAMIPRIL [Concomitant]
  7. PREDNISOLONE [Concomitant]
  8. THIAMINE [Concomitant]
  9. AMLODIPINE [Concomitant]
  10. INSULIN [Concomitant]
  11. DALTEPARIN [Concomitant]
  12. FENTANYL [Concomitant]
  13. ATRACURIUM [Concomitant]

REACTIONS (3)
  - Impaired gastric emptying [None]
  - Vomiting [None]
  - Bradycardia [None]
